FAERS Safety Report 6780723-X (Version None)
Quarter: 2010Q2

REPORT INFORMATION
  Report Type: 
  Country: None (occurrence: None)
  Receive Date: 20100621
  Receipt Date: 20100609
  Transmission Date: 20101027
  Serious: No
  Sender: FDA-Public Use
  Company Number: 2010BI003726

PATIENT
  Age: 50 Year
  Sex: Female

DRUGS (1)
  1. TYSABRI [Suspect]
     Indication: MULTIPLE SCLEROSIS
     Route: 042
     Dates: start: 20070501, end: 20070822

REACTIONS (8)
  - DRUG INEFFECTIVE [None]
  - FEELING ABNORMAL [None]
  - GENERAL SYMPTOM [None]
  - HEADACHE [None]
  - HYPERSENSITIVITY [None]
  - INDIFFERENCE [None]
  - MULTIPLE SCLEROSIS RELAPSE [None]
  - QUALITY OF LIFE DECREASED [None]
